FAERS Safety Report 5717839-2 (Version None)
Quarter: 2008Q2

REPORT INFORMATION
  Report Type: 
  Country: None (occurrence: None)
  Receive Date: 20080425
  Receipt Date: 20080415
  Transmission Date: 20081010
  Serious: Yes (Other)
  Sender: FDA-Public Use
  Company Number: US-JNJFOC-20080404350

PATIENT
  Age: 63 Year
  Sex: Male

DRUGS (4)
  1. ASPIRIN [Suspect]
     Indication: DRUG USE FOR UNKNOWN INDICATION
     Dosage: FOR YEARS
  2. ANTIHISTAMINES [Concomitant]
  3. CORTICOSTEROID [Concomitant]
  4. IMMUNOTHERAPY [Concomitant]

REACTIONS (1)
  - ANALGESIC ASTHMA SYNDROME [None]
